FAERS Safety Report 5684255-1 (Version None)
Quarter: 2008Q1

REPORT INFORMATION
  Report Type: 
  Country: None (occurrence: None)
  Receive Date: 20080327
  Receipt Date: 20080327
  Transmission Date: 20080703
  Serious: Yes (Other)
  Sender: FDA-Public Use
  Company Number: None

PATIENT
  Age: 61 Year
  Sex: Female
  Weight: 72.5755 kg

DRUGS (1)
  1. LIPITOR [Suspect]
     Indication: BLOOD CHOLESTEROL INCREASED
     Dosage: 10 MG. DAILY
     Dates: start: 20040901

REACTIONS (8)
  - ALOPECIA [None]
  - HEADACHE [None]
  - MYALGIA [None]
  - PAIN [None]
  - POLYNEUROPATHY [None]
  - RASH [None]
  - RHINORRHOEA [None]
  - VISUAL DISTURBANCE [None]
